FAERS Safety Report 18711246 (Version 9)
Quarter: 2022Q2

REPORT INFORMATION
  Report Type: Report from Study
  Country: US (occurrence: US)
  Receive Date: 20210107
  Receipt Date: 20220509
  Transmission Date: 20220721
  Serious: Yes (Death)
  Sender: FDA-Public Use
  Company Number: US-GLAXOSMITHKLINE-US2020AMR221970

PATIENT
  Sex: Female

DRUGS (1)
  1. BELANTAMAB MAFODOTIN [Suspect]
     Active Substance: BELANTAMAB MAFODOTIN
     Indication: Plasma cell myeloma
     Dosage: UNK
     Route: 065
     Dates: start: 20201105, end: 20210422

REACTIONS (5)
  - Infection [Fatal]
  - Keratopathy [Unknown]
  - Visual acuity reduced [Unknown]
  - Photophobia [Unknown]
  - Night blindness [Unknown]
